FAERS Safety Report 19356058 (Version 1)
Quarter: 2021Q2

REPORT INFORMATION
  Report Type: Spontaneous
  Country: US (occurrence: US)
  Receive Date: 20210531
  Receipt Date: 20210531
  Transmission Date: 20210717
  Serious: Yes (Other)
  Sender: FDA-Public Use
  Company Number: US-PURDUE-USA-2020-0207064

PATIENT
  Sex: Male

DRUGS (3)
  1. BUPRENORPHINE TRANSDERMAL PATCH (SIMILAR TO NDA 21?306) [Suspect]
     Active Substance: BUPRENORPHINE
     Indication: PRODUCT USED FOR UNKNOWN INDICATION
     Dosage: UNK
     Route: 048
  2. OXYCONTIN [Suspect]
     Active Substance: OXYCODONE HYDROCHLORIDE
     Indication: PRODUCT USED FOR UNKNOWN INDICATION
     Dosage: UNK
     Route: 048
  3. OXYCODONE HCL TABLETS (91?490) [Suspect]
     Active Substance: OXYCODONE HYDROCHLORIDE
     Indication: PRODUCT USED FOR UNKNOWN INDICATION
     Dosage: UNK
     Route: 048

REACTIONS (14)
  - Anxiety [Unknown]
  - Depression [Unknown]
  - Pain in extremity [Unknown]
  - Restless legs syndrome [Unknown]
  - Post-traumatic stress disorder [Unknown]
  - Overdose [Unknown]
  - Hyperhidrosis [Unknown]
  - Quality of life decreased [Unknown]
  - Back pain [Unknown]
  - Malaise [Unknown]
  - Stress [Unknown]
  - Emotional distress [Unknown]
  - Drug dependence [Unknown]
  - Withdrawal syndrome [Unknown]

NARRATIVE: CASE EVENT DATE: 200909
